FAERS Safety Report 7228017-2 (Version None)
Quarter: 2011Q1

REPORT INFORMATION
  Report Type: 
  Country: None (occurrence: None)
  Receive Date: 20110114
  Receipt Date: 20110104
  Transmission Date: 20110831
  Serious: Yes (Hospitalization)
  Sender: FDA-Public Use
  Company Number: DE-GENENTECH-312135

PATIENT
  Sex: Female
  Weight: 65 kg

DRUGS (3)
  1. BENDAMUSTINE [Suspect]
     Indication: NON-HODGKIN'S LYMPHOMA
     Dosage: 302 MG, Q4W
     Route: 042
     Dates: start: 20101127
  2. VIANI [Concomitant]
     Indication: PRODUCT USED FOR UNKNOWN INDICATION
     Dosage: 1 DF, UNK
  3. RITUXIMAB [Suspect]
     Indication: NON-HODGKIN'S LYMPHOMA
     Dosage: 650 MG, Q4W
     Route: 042
     Dates: start: 20101127

REACTIONS (2)
  - PYREXIA [None]
  - FACE OEDEMA [None]
